FAERS Safety Report 15878890 (Version 1)
Quarter: 2019Q1

REPORT INFORMATION
  Report Type: Spontaneous
  Country: US (occurrence: US)
  Receive Date: 20190104
  Receipt Date: 20190104
  Transmission Date: 20190417
  Serious: No
  Sender: FDA-Public Use
  Company Number: None

PATIENT
  Age: 61 Year

DRUGS (1)
  1. CYCLOSPORINE MODIFIED [Suspect]
     Active Substance: CYCLOSPORINE
     Dates: start: 2000

REACTIONS (2)
  - Colonoscopy abnormal [None]
  - Blood test abnormal [None]

NARRATIVE: CASE EVENT DATE: 20180103
